FAERS Safety Report 8119068-4 (Version None)
Quarter: 2012Q1

REPORT INFORMATION
  Report Type: 
  Country: None (occurrence: None)
  Receive Date: 20120207
  Receipt Date: 20120131
  Transmission Date: 20120608
  Serious: Yes (Death)
  Sender: FDA-Public Use
  Company Number: US-ROCHE-1032413

PATIENT
  Sex: Female
  Weight: 71.278 kg

DRUGS (3)
  1. PHENERGAN [Concomitant]
  2. XELODA [Suspect]
     Indication: METASTATIC GASTRIC CANCER
     Route: 048
     Dates: start: 20120104
  3. PERCOCET [Concomitant]

REACTIONS (3)
  - NAUSEA [None]
  - VOMITING [None]
  - DEATH [None]
